FAERS Safety Report 16023439 (Version 6)
Quarter: 2020Q2

REPORT INFORMATION
  Report Type: Report from Study
  Country: ZW (occurrence: ZW)
  Receive Date: 20190301
  Receipt Date: 20200619
  Transmission Date: 20200713
  Serious: Yes (Life-Threatening, Other)
  Sender: FDA-Public Use
  Company Number: ZW-VIIV HEALTHCARE LIMITED-ZW2019GSK035578

PATIENT
  Age: 38 Year
  Sex: Male
  Weight: 79.5 kg

DRUGS (3)
  1. DARUNAVIR + RITONAVIR [Suspect]
     Active Substance: DARUNAVIR\RITONAVIR
     Indication: HIV INFECTION
     Dosage: UNK
     Dates: start: 20180312, end: 20190215
  2. DOLUTEGRAVIR [Suspect]
     Active Substance: DOLUTEGRAVIR
     Indication: HIV INFECTION
     Dosage: UNK
     Dates: start: 20180312, end: 20190215
  3. COTRIMOXAZOLE [Concomitant]
     Active Substance: SULFAMETHOXAZOLE\TRIMETHOPRIM
     Indication: PROPHYLAXIS
     Dosage: UNK
     Dates: start: 20160318

REACTIONS (1)
  - Acute hepatitis B [Recovered/Resolved]

NARRATIVE: CASE EVENT DATE: 20190211
